FAERS Safety Report 14754472 (Version 1)
Quarter: 2018Q2

REPORT INFORMATION
  Report Type: Report from Study
  Country: US (occurrence: US)
  Receive Date: 20180412
  Receipt Date: 20180412
  Transmission Date: 20180711
  Serious: Yes (Hospitalization)
  Sender: FDA-Public Use
  Company Number: US-ASTRAZENECA-2015SF13067

PATIENT
  Age: 69 Year
  Sex: Male

DRUGS (7)
  1. BRILINTA [Suspect]
     Active Substance: TICAGRELOR
     Indication: ACUTE CORONARY SYNDROME
     Route: 048
  2. CRESTOR [Suspect]
     Active Substance: ROSUVASTATIN CALCIUM
     Indication: LOW DENSITY LIPOPROTEIN INCREASED
     Route: 048
  3. PRINIVIL [Concomitant]
     Active Substance: LISINOPRIL
     Indication: ANGIOPATHY
  4. ATENOLOL. [Suspect]
     Active Substance: ATENOLOL
     Route: 048
  5. CRESTOR [Suspect]
     Active Substance: ROSUVASTATIN CALCIUM
     Indication: HIGH DENSITY LIPOPROTEIN DECREASED
     Route: 048
  6. CLONAZEPAM. [Concomitant]
     Active Substance: CLONAZEPAM
     Indication: ANXIETY
     Dosage: 0.5MG AS REQUIRED
     Dates: start: 2014
  7. ASPIRIN. [Concomitant]
     Active Substance: ASPIRIN
     Indication: ANTICOAGULANT THERAPY

REACTIONS (4)
  - Dyspnoea [Unknown]
  - Glycosylated haemoglobin increased [Unknown]
  - Myocardial infarction [Unknown]
  - Complication associated with device [Unknown]

NARRATIVE: CASE EVENT DATE: 2015
